FAERS Safety Report 23236629 (Version 1)
Quarter: 2023Q4

REPORT INFORMATION
  Report Type: Spontaneous
  Country: US (occurrence: None)
  Receive Date: 20231127
  Receipt Date: 20231127
  Transmission Date: 20240110
  Serious: No
  Sender: FDA-Public Use
  Company Number: None

PATIENT
  Age: 50 Year
  Sex: Female
  Weight: 104.33 kg

DRUGS (1)
  1. NUCALA [Suspect]
     Active Substance: MEPOLIZUMAB
     Indication: Sinus polyp
     Dosage: INJECT 100MG SUBCUTANEOUSLY IN THE ABDOMEN  THIGH  OR UPPER ARM  EVERY 4 WEEKS AS DIREC
     Route: 058
     Dates: start: 202311

REACTIONS (5)
  - Pneumonia [None]
  - Haemophilus infection [None]
  - Oedema peripheral [None]
  - Renal disorder [None]
  - White blood cell count increased [None]
